FAERS Safety Report 7981679-4 (Version None)
Quarter: 2011Q4

REPORT INFORMATION
  Report Type: 
  Country: None (occurrence: None)
  Receive Date: 20111215
  Receipt Date: 20111205
  Transmission Date: 20120403
  Serious: Yes (Other)
  Sender: FDA-Public Use
  Company Number: US-BAYER-2011-050081

PATIENT
  Age: 18 Year
  Sex: Female
  Weight: 63.492 kg

DRUGS (4)
  1. NORCO [Concomitant]
     Indication: PROCEDURAL PAIN
     Dosage: UNK UNK, PRN
     Route: 048
  2. YAZ [Suspect]
     Indication: MENSTRUATION IRREGULAR
     Dosage: UNK
     Dates: start: 20061001, end: 20070101
  3. YASMIN [Suspect]
     Indication: MENSTRUATION IRREGULAR
     Dosage: UNK
     Route: 048
     Dates: start: 20051201, end: 20061001
  4. YASMIN [Suspect]
     Dosage: UNK
     Route: 048
     Dates: start: 20070101, end: 20070501

REACTIONS (14)
  - CYANOSIS [None]
  - SUPERIOR SAGITTAL SINUS THROMBOSIS [None]
  - PSYCHOLOGICAL TRAUMA [None]
  - ANHEDONIA [None]
  - INJURY [None]
  - PAIN IN EXTREMITY [None]
  - PAIN [None]
  - TRANSVERSE SINUS THROMBOSIS [None]
  - FEELING COLD [None]
  - PARAESTHESIA [None]
  - VENOUS INJURY [None]
  - ANXIETY [None]
  - FEAR [None]
  - DEEP VEIN THROMBOSIS [None]
